FAERS Safety Report 8043560-4 (Version None)
Quarter: 2012Q1

REPORT INFORMATION
  Report Type: 
  Country: None (occurrence: None)
  Receive Date: 20120112
  Receipt Date: 20111214
  Transmission Date: 20120608
  Serious: Yes (Other)
  Sender: FDA-Public Use
  Company Number: PHHY2011BR114745

PATIENT
  Age: 83 Year
  Sex: Female

DRUGS (4)
  1. CYCLOSPORINE [Suspect]
     Indication: PSORIASIS
     Dosage: 200 MG, DAY
  2. CYCLOSPORINE [Suspect]
     Dosage: 50 MG, PER WEEK
  3. CYCLOSPORINE [Suspect]
     Dosage: 200 MG, PER DAY
  4. ISONIAZID [Concomitant]
     Indication: ANTIBIOTIC PROPHYLAXIS
     Dosage: 300 MG, PER DAY, FOR SIX MONTHS

REACTIONS (4)
  - DISEASE RECURRENCE [None]
  - DEPRESSION [None]
  - TUBERCULIN TEST POSITIVE [None]
  - RENAL IMPAIRMENT [None]
